FAERS Safety Report 24438182 (Version 1)
Quarter: 2024Q4

REPORT INFORMATION
  Report Type: Spontaneous
  Country: CN (occurrence: CN)
  Receive Date: 20241015
  Receipt Date: 20241015
  Transmission Date: 20250114
  Serious: Yes (Other)
  Sender: MELINTA THERAPEUTICS
  Company Number: CN-ASTRAZENECA-202409CHN011713CN

PATIENT

DRUGS (1)
  1. METOPROLOL SUCCINATE [Suspect]
     Active Substance: METOPROLOL SUCCINATE
     Indication: Heart rate
     Dosage: 47 MILLIGRAM, QD
     Route: 048
     Dates: start: 20240904, end: 20240906

REACTIONS (2)
  - Atrial flutter [Recovering/Resolving]
  - Atrial fibrillation [Recovering/Resolving]

NARRATIVE: CASE EVENT DATE: 20240906
